FAERS Safety Report 10366092 (Version 1)
Quarter: 2014Q1

REPORT INFORMATION
  Report Type: Spontaneous
  Country: US (occurrence: None)
  Receive Date: 20140306
  Receipt Date: 20140306
  Transmission Date: 20141002
  Serious: Yes (Hospitalization)
  Sender: FDA-Public Use
  Company Number: 163-21880-13030172

PATIENT
  Age: 69 Year
  Sex: Male
  Weight: 117 kg

DRUGS (11)
  1. REVLIMID (LENALIDOMIDE) (10 MILLIGRAM, CAPSULES) [Suspect]
     Indication: PLASMA CELL MYELOMA
     Route: 048
     Dates: start: 20070723, end: 200803
  2. CARFILZOMIB (UNKNOWN) [Concomitant]
  3. DEXAMETHASONE (UNKNOWN) [Concomitant]
  4. ASPIRIN (ACETYLSALICYLIC ACID) (ENTERIC-COATED TABLET) [Concomitant]
  5. CALCIUM 500 (UNKNOWN) [Concomitant]
  6. COUMADIN (WARFARIN SODIUM) (TABLETS) [Concomitant]
  7. FISH OIL (CAPSULES) [Concomitant]
  8. MAGNESIUM (TABLETS) [Concomitant]
  9. MULTIVITAMINS (CAPSULES) [Concomitant]
  10. POTASSIUM BICARBONATE (UNKNOWN) [Concomitant]
  11. SPIRULINA (TABLETS) [Concomitant]

REACTIONS (4)
  - Femur fracture [None]
  - Ear discomfort [None]
  - Plasma cell myeloma [None]
  - Drug ineffective [None]
